FAERS Safety Report 18810421 (Version 1)
Quarter: 2021Q1

REPORT INFORMATION
  Report Type: Spontaneous
  Country: US (occurrence: US)
  Receive Date: 20210129
  Receipt Date: 20210129
  Transmission Date: 20210419
  Serious: No
  Sender: FDA-Public Use
  Company Number: US-ALKERMES INC.-ALK-2021-000459

PATIENT
  Age: 57 Year
  Sex: Male

DRUGS (2)
  1. VIVITROL [Suspect]
     Active Substance: NALTREXONE
     Dosage: 380 MILLIGRAM, QMO
     Route: 030
  2. VIVITROL [Suspect]
     Active Substance: NALTREXONE
     Indication: PRODUCT USED FOR UNKNOWN INDICATION
     Dosage: 380 MILLIGRAM, QMO
     Route: 030
     Dates: start: 20210122

REACTIONS (3)
  - Needle issue [Recovered/Resolved]
  - Injection site reaction [Not Recovered/Not Resolved]
  - Injection site pain [Not Recovered/Not Resolved]

NARRATIVE: CASE EVENT DATE: 20210122
